FAERS Safety Report 20689879 (Version 2)
Quarter: 2022Q2

REPORT INFORMATION
  Report Type: Report from Study
  Country: US (occurrence: US)
  Receive Date: 20220408
  Receipt Date: 20220610
  Transmission Date: 20220721
  Serious: Yes (Death, Hospitalization)
  Sender: FDA-Public Use
  Company Number: US-EXELIXIS-XL18422050782

PATIENT

DRUGS (4)
  1. CABOZANTINIB [Suspect]
     Active Substance: CABOZANTINIB
     Indication: Papillary thyroid cancer
     Dosage: 40 MG, QD
     Route: 048
     Dates: start: 20210708, end: 20211226
  2. NIVOLUMAB [Suspect]
     Active Substance: NIVOLUMAB
     Indication: Papillary thyroid cancer
     Dosage: 240 MG, ON DAYS 1, 15, AND 29)
     Route: 042
     Dates: start: 20210721
  3. NIVOLUMAB [Suspect]
     Active Substance: NIVOLUMAB
     Dosage: 480 MG, ON DAY 1
     Route: 042
     Dates: end: 20211208
  4. IPILIMUMAB [Suspect]
     Active Substance: IPILIMUMAB
     Indication: Papillary thyroid cancer
     Dosage: 1 MG/KG, ON DAY 1
     Route: 042
     Dates: start: 20210721, end: 20211208

REACTIONS (3)
  - Left ventricular failure [Fatal]
  - Troponin I increased [Recovering/Resolving]
  - Dyspnoea [Not Recovered/Not Resolved]

NARRATIVE: CASE EVENT DATE: 20211227
